FAERS Safety Report 7394907-3 (Version None)
Quarter: 2011Q2

REPORT INFORMATION
  Report Type: 
  Country: None (occurrence: None)
  Receive Date: 20110405
  Receipt Date: 20110322
  Transmission Date: 20111010
  Serious: Yes (Other)
  Sender: FDA-Public Use
  Company Number: B0709050A

PATIENT
  Sex: Male

DRUGS (3)
  1. CRESTOR [Concomitant]
     Indication: BLOOD CHOLESTEROL INCREASED
  2. VIAGRA [Concomitant]
     Dosage: 100MG AS REQUIRED
  3. AVODART [Suspect]
     Route: 065
     Dates: start: 20110317, end: 20110322

REACTIONS (2)
  - DRUG INEFFECTIVE [None]
  - URINARY INCONTINENCE [None]
